FAERS Safety Report 9630763 (Version 1)
Quarter: 2013Q4

REPORT INFORMATION
  Report Type: Spontaneous
  Country: US (occurrence: None)
  Receive Date: 20131016
  Receipt Date: 20131016
  Transmission Date: 20140711
  Serious: Yes (Hospitalization)
  Sender: FDA-Public Use
  Company Number: US-000814

PATIENT
  Age: 70 Year
  Sex: Male

DRUGS (12)
  1. GATTEX [Suspect]
     Indication: SHORT-BOWEL SYNDROME
     Route: 058
     Dates: start: 20130802
  2. TAMULOSIN [Concomitant]
  3. METOPROLOL [Suspect]
  4. PANTOPRAZOLE [Concomitant]
  5. CALCIUM + VITAMIN D [Concomitant]
  6. VTAMIN C /00008001/ [Concomitant]
  7. FERROUS SULFATE [Concomitant]
  8. NORTRYPTYLINE [Concomitant]
  9. CODEINE SULFATE [Concomitant]
  10. ATROPINE W/DIPHENOXYLATE /00034001/ [Concomitant]
  11. ALENDRONATE [Concomitant]
  12. SOLUTIONS FOR PARENTERAL NUTRITION [Concomitant]

REACTIONS (3)
  - Cold sweat [None]
  - Chills [None]
  - Catheter site infection [None]
